FAERS Safety Report 15275427 (Version 2)
Quarter: 2018Q3

REPORT INFORMATION
  Report Type: Spontaneous
  Country: HK (occurrence: HK)
  Receive Date: 20180814
  Receipt Date: 20180905
  Transmission Date: 20181010
  Serious: Yes (Other)
  Sender: FDA-Public Use
  Company Number: HK-BAYER-2018-150844

PATIENT
  Age: 45 Year
  Sex: Female

DRUGS (2)
  1. MIRENA [Suspect]
     Active Substance: LEVONORGESTREL
     Indication: ENDOMETRIAL HYPERPLASIA
     Dosage: 20 MCG/24HR, CONT
     Route: 015
     Dates: start: 20160805, end: 20170202
  2. NORETHISTERONE [Concomitant]
     Active Substance: NORETHINDRONE
     Indication: MENORRHAGIA
     Dosage: 5 MG, UNK
     Dates: start: 20160720, end: 20160805

REACTIONS (3)
  - Breast cancer [None]
  - Device use issue [None]
  - Off label use [None]

NARRATIVE: CASE EVENT DATE: 201608
